FAERS Safety Report 7074986-3 (Version None)
Quarter: 2010Q4

REPORT INFORMATION
  Report Type: 
  Country: None (occurrence: None)
  Receive Date: 20101029
  Receipt Date: 20100105
  Transmission Date: 20110411
  Serious: No
  Sender: FDA-Public Use
  Company Number: US-WYE-H12885410

PATIENT
  Age: 44 Year
  Sex: Female
  Weight: 127.12 kg

DRUGS (1)
  1. ALAVERT [Suspect]
     Indication: SEASONAL ALLERGY
     Route: 048
     Dates: start: 20100101, end: 20100103

REACTIONS (2)
  - EPISTAXIS [None]
  - HEADACHE [None]
